FAERS Safety Report 16731003 (Version 3)
Quarter: 2019Q4

REPORT INFORMATION
  Report Type: Report from Study
  Country: GB (occurrence: GB)
  Receive Date: 20190822
  Receipt Date: 20191017
  Transmission Date: 20200122
  Serious: Yes (Hospitalization)
  Sender: FDA-Public Use
  Company Number: GB-JNJFOC-20190812034

PATIENT
  Age: 69 Year
  Sex: Male

DRUGS (22)
  1. TAMSULOSIN [Concomitant]
     Active Substance: TAMSULOSIN
     Dosage: (9:00)
     Route: 048
  2. ZOPICLONE [Concomitant]
     Active Substance: ZOPICLONE
     Indication: INSOMNIA
     Dosage: MINIMUM DOSAGE INTERVAL 24 HOURS
     Route: 048
  3. CETIRIZINE HYDROCHLORIDE. [Concomitant]
     Active Substance: CETIRIZINE HYDROCHLORIDE
     Dosage: AT NIGHT (22:30)
     Route: 048
  4. LANSOPRAZOLE. [Concomitant]
     Active Substance: LANSOPRAZOLE
     Dosage: IN THE MORNING (9:00)
     Route: 048
  5. PARACETAMOL [Concomitant]
     Active Substance: ACETAMINOPHEN
     Dosage: (9:00, 13:00, 18:00, 22: 30)
     Route: 048
  6. POSACONAZOLE [Concomitant]
     Active Substance: POSACONAZOLE
     Indication: ANTIFUNGAL PROPHYLAXIS
     Dosage: (9:00)
  7. PREDNISOLONE. [Concomitant]
     Active Substance: PREDNISOLONE
     Dosage: (9:00)
     Route: 048
  8. IBRUTINIB [Suspect]
     Active Substance: IBRUTINIB
     Indication: CHRONIC LYMPHOCYTIC LEUKAEMIA
     Route: 048
     Dates: start: 20150516, end: 20190812
  9. ALLOPURINOL. [Concomitant]
     Active Substance: ALLOPURINOL
     Dosage: IN THE MORNING 9 AM
  10. CHLORHEXIDINE GLUCONATE. [Concomitant]
     Active Substance: CHLORHEXIDINE GLUCONATE
     Dosage: 0.2 % MOUTH WASH, DOSE: 10 ML OROMUCOSAL FOUR TIMES A DAY (9:00, 13:30, 18: 00, 22:30)
  11. SENNOSIDE                          /00571902/ [Concomitant]
     Active Substance: SENNOSIDES A AND B
     Dosage: (22:30)
     Route: 048
  12. GENTAMICIN. [Concomitant]
     Active Substance: GENTAMICIN
     Indication: ANTIBIOTIC THERAPY
     Route: 030
  13. FILGRASTIM [Concomitant]
     Active Substance: FILGRASTIM
     Dosage: ONCE A DAY (9:00)?INDICATION AS PER HAEM PLAN
     Route: 058
  14. LACTULOSE. [Concomitant]
     Active Substance: LACTULOSE
     Dosage: (9:00, 18:00)
     Route: 048
  15. LACTULOSE. [Concomitant]
     Active Substance: LACTULOSE
     Dosage: MINIMUM DOSAGE INTERVAL 12 HOURS UP TO 20 ML PER DAY
     Route: 048
  16. CODEINE PHOSPHATE [Concomitant]
     Active Substance: CODEINE PHOSPHATE
     Dosage: 30 TO 60 MILLIGRAM, MINIMUM DOSAGE INTERVAL 4 HOURS UP TO 240 MG EVERY 24 HOURS
     Route: 048
  17. MACROGOL [Concomitant]
     Active Substance: POLYETHYLENE GLYCOLS
     Indication: CONSTIPATION
     Dosage: 2 SACHETS ORAL PRN, MINIMUM DOSAGE INTERVAL 2 HOURS UP TO 8 SACHETS PER DAY
     Route: 048
  18. ZOPICLONE [Concomitant]
     Active Substance: ZOPICLONE
     Dosage: 3.75 MG ORAL STAT (22:49)
     Route: 048
  19. PARACETAMOL [Concomitant]
     Active Substance: ACETAMINOPHEN
     Dosage: MINIMUM DOSAGE INTERVAL 6 HOURS UP TO 4 G PER DAY.
     Route: 048
  20. SENNOSIDE                          /00571902/ [Concomitant]
     Active Substance: SENNOSIDES A AND B
     Dosage: MINIMUM DOSAGE INTERVAL 20 HOURS
     Route: 048
  21. ZEROBASE                           /00103901/ [Concomitant]
     Indication: RASH PRURITIC
     Dosage: (9:00, 18:00)
     Route: 061
  22. LIDOCAINE W/ZINC OXIDE [Concomitant]
     Dosage: LIDOCAINE 0.7% PLUS ZINC OXIDE 6.6% CREAM TOPICAL/CUTANEOUS, MINIMUM DOSAGE INTERVAL 4 HOURS
     Route: 061

REACTIONS (2)
  - Urinary retention [Recovered/Resolved]
  - Autoimmune neutropenia [Recovered/Resolved with Sequelae]

NARRATIVE: CASE EVENT DATE: 20190804
